FAERS Safety Report 4445000-0 (Version None)
Quarter: 2004Q3

REPORT INFORMATION
  Report Type: 
  Country: None (occurrence: None)
  Receive Date: 20040909
  Receipt Date: 20040906
  Transmission Date: 20050211
  Serious: Yes (Hospitalization)
  Sender: FDA-Public Use
  Company Number: GB-BRISTOL-MYERS SQUIBB COMPANY-12693214

PATIENT
  Age: 51 Year
  Sex: Female
  Weight: 67 kg

DRUGS (5)
  1. CARBOPLATIN [Suspect]
     Indication: GERM CELL CANCER
     Dates: start: 20040429, end: 20040429
  2. ETOPOSIDE [Suspect]
     Indication: GERM CELL CANCER
     Route: 042
     Dates: start: 20040402, end: 20040402
  3. IFOSFAMIDE [Suspect]
     Indication: GERM CELL CANCER
     Dosage: START DATE:  29-MAR-2004
     Route: 042
     Dates: start: 20040402, end: 20040402
  4. MESNA [Suspect]
     Indication: GERM CELL CANCER
     Dosage: START DATE:  29-MAR-2004
     Route: 042
     Dates: start: 20040402, end: 20040402
  5. CIPROFLOXACIN [Concomitant]
     Indication: PROPHYLAXIS
     Route: 048
     Dates: start: 20040405

REACTIONS (3)
  - DYSURIA [None]
  - HAEMATURIA [None]
  - PYREXIA [None]
